FAERS Safety Report 7045643-4 (Version None)
Quarter: 2010Q3

REPORT INFORMATION
  Report Type: 
  Country: None (occurrence: None)
  Receive Date: 20100929
  Receipt Date: 20100810
  Transmission Date: 20110219
  Serious: No
  Sender: FDA-Public Use
  Company Number: US-WYE-H16852810

PATIENT
  Age: 27 Year
  Sex: Female

DRUGS (3)
  1. PRISTIQ [Suspect]
     Indication: PRODUCT USED FOR UNKNOWN INDICATION
     Dosage: 50 MG 1X PER 1 DAY
     Dates: start: 20090501
  2. TRAZODONE HCL [Concomitant]
  3. CLONAZEPAM [Concomitant]

REACTIONS (3)
  - DRUG WITHDRAWAL SYNDROME [None]
  - HEADACHE [None]
  - MEDICATION RESIDUE [None]
